FAERS Safety Report 6316740-3 (Version None)
Quarter: 2009Q3

REPORT INFORMATION
  Report Type: 
  Country: None (occurrence: None)
  Receive Date: 20090820
  Receipt Date: 20090812
  Transmission Date: 20100115
  Serious: Yes (Death)
  Sender: FDA-Public Use
  Company Number: ES-ELI_LILLY_AND_COMPANY-ES200908002987

PATIENT
  Age: 85 Year
  Sex: Female

DRUGS (5)
  1. FORTEO [Suspect]
     Indication: OSTEOPOROSIS
     Dosage: 20 UG, DAILY (1/D)
     Route: 058
     Dates: end: 20090710
  2. MORPHIN /00036303/ [Concomitant]
  3. SINEMET CR [Concomitant]
  4. CALCIUM [Concomitant]
  5. ADIRO [Concomitant]

REACTIONS (3)
  - DEATH [None]
  - DECREASED APPETITE [None]
  - DIZZINESS [None]
